FAERS Safety Report 7506216-X (Version None)
Quarter: 2011Q2

REPORT INFORMATION
  Report Type: 
  Country: None (occurrence: None)
  Receive Date: 20110526
  Receipt Date: 20110520
  Transmission Date: 20111010
  Serious: Yes (Hospitalization)
  Sender: FDA-Public Use
  Company Number: GB-PFIZER INC-2011104151

PATIENT
  Age: 63 Year
  Sex: Female
  Weight: 68.9 kg

DRUGS (2)
  1. NAPROXEN [Suspect]
     Dosage: UNK
     Dates: start: 20110114
  2. IBUPROFEN [Suspect]
     Indication: OSTEOARTHRITIS
     Dosage: 400 MG, ONCE EVERY THREE DAYS
     Route: 048
     Dates: start: 20100701, end: 20110114

REACTIONS (1)
  - PLEURITIC PAIN [None]
